FAERS Safety Report 11156059 (Version 1)
Quarter: 2015Q2

REPORT INFORMATION
  Report Type: Spontaneous
  Country: US (occurrence: US)
  Receive Date: 20150602
  Receipt Date: 20150602
  Transmission Date: 20150821
  Serious: Yes (Life-Threatening)
  Sender: FDA-Public Use
  Company Number: US-BAYER-2015-291907

PATIENT
  Sex: Female

DRUGS (1)
  1. CITRACAL [Suspect]
     Active Substance: CALCIUM CITRATE
     Dosage: UNK

REACTIONS (1)
  - Choking [Unknown]
